FAERS Safety Report 9759507 (Version 3)
Quarter: 2014Q1

REPORT INFORMATION
  Report Type: Spontaneous
  Country: NO (occurrence: NO)
  Receive Date: 20131216
  Receipt Date: 20140109
  Transmission Date: 20141002
  Serious: Yes (Hospitalization, Other)
  Sender: FDA-Public Use
  Company Number: NO-PFIZER INC-2013357913

PATIENT
  Sex: Male
  Weight: 3.8 kg

DRUGS (2)
  1. VENLAFAXINE HCL [Suspect]
     Indication: ANXIETY
     Dosage: 150MG AND 75MG ON ALTERNATE DAYS
     Route: 064
  2. VENLAFAXINE HCL [Suspect]
     Indication: DEPRESSION

REACTIONS (3)
  - Foetal exposure during pregnancy [Recovered/Resolved]
  - Convulsion neonatal [Recovered/Resolved]
  - Drug withdrawal syndrome neonatal [Recovered/Resolved]
